FAERS Safety Report 8499243-X (Version None)
Quarter: 2012Q3

REPORT INFORMATION
  Report Type: 
  Country: None (occurrence: None)
  Receive Date: 20120710
  Receipt Date: 20120704
  Transmission Date: 20120928
  Serious: Yes (Hospitalization)
  Sender: FDA-Public Use
  Company Number: PHHY2012IT058110

PATIENT
  Sex: Female

DRUGS (12)
  1. OMEPRAZOLE [Concomitant]
     Dosage: 20 MG, UNK
     Route: 048
  2. ASPIRIN [Concomitant]
     Dosage: 1 DF, UNK
     Route: 048
  3. NEORAL [Suspect]
     Indication: RENAL TRANSPLANT
     Dosage: 200 MG, DAILY
     Route: 048
     Dates: start: 20120126, end: 20120514
  4. AZATHIOPRINE [Suspect]
     Indication: RENAL TRANSPLANT
     Dosage: 50 MG, DAILY
     Dates: start: 20120126, end: 20120430
  5. LEVOFLOXACIN [Suspect]
     Indication: URINARY TRACT INFECTION
     Dosage: 250 MG, DAILY
     Route: 048
     Dates: start: 20120507, end: 20120514
  6. VALGANCICLOVIR [Concomitant]
     Dosage: 450 MG, UNK
     Route: 048
  7. MEDROL [Concomitant]
     Dosage: 8 MG, UNK
     Route: 048
     Dates: start: 20120301, end: 20120430
  8. BISOPROLOL FUMARATE [Concomitant]
     Dosage: 2.5 MG, UNK
     Route: 048
  9. COLCHICINE [Suspect]
     Indication: HYPERURICAEMIA
     Dosage: 1 DF, UNK
     Route: 048
     Dates: start: 20120423, end: 20120514
  10. NEORAL [Suspect]
     Dosage: 75 MG, UNK
     Dates: start: 20120529
  11. LASIX [Concomitant]
     Dosage: 1 DF, UNK
     Route: 048
  12. ARANESP [Concomitant]

REACTIONS (6)
  - DIARRHOEA [None]
  - THROMBOCYTOPENIA [None]
  - LEUKOPENIA [None]
  - AZOTAEMIA [None]
  - VOMITING [None]
  - RHABDOMYOLYSIS [None]
